FAERS Safety Report 15685128 (Version 1)
Quarter: 2018Q4

REPORT INFORMATION
  Report Type: Spontaneous
  Country: US (occurrence: US)
  Receive Date: 20181204
  Receipt Date: 20181204
  Transmission Date: 20190205
  Serious: No
  Sender: FDA-Public Use
  Company Number: US-SHIRE-US201846902

PATIENT
  Sex: Female

DRUGS (1)
  1. XIIDRA [Suspect]
     Active Substance: LIFITEGRAST
     Indication: DRY EYE
     Route: 047
     Dates: start: 20181009, end: 20181101

REACTIONS (4)
  - Dysgeusia [Not Recovered/Not Resolved]
  - Vision blurred [Unknown]
  - Instillation site reaction [Unknown]
  - Diplopia [Recovering/Resolving]
